FAERS Safety Report 23116640 (Version 1)
Quarter: 2023Q4

REPORT INFORMATION
  Report Type: Spontaneous
  Country: US (occurrence: US)
  Receive Date: 20231027
  Receipt Date: 20231027
  Transmission Date: 20240110
  Serious: No
  Sender: FDA-Public Use
  Company Number: US-PERRIGO-22US015310

PATIENT

DRUGS (3)
  1. FAMOTIDINE [Suspect]
     Active Substance: FAMOTIDINE
     Indication: Product used for unknown indication
     Dosage: 40 MG, BID
     Route: 048
     Dates: start: 2022
  2. FAMOTIDINE [Suspect]
     Active Substance: FAMOTIDINE
     Dosage: 40 MG, SINGLE AM
     Route: 048
     Dates: start: 20221118, end: 20221118
  3. FAMOTIDINE [Suspect]
     Active Substance: FAMOTIDINE
     Dosage: 1 ADDITIONAL TABLET, SINGLE
     Route: 048
     Dates: start: 20221118, end: 20221118

REACTIONS (1)
  - Incorrect dose administered [Unknown]
